FAERS Safety Report 21901465 (Version 3)
Quarter: 2023Q1

REPORT INFORMATION
  Report Type: Spontaneous
  Country: US (occurrence: US)
  Receive Date: 20230123
  Receipt Date: 20230301
  Transmission Date: 20230418
  Serious: No
  Sender: FDA-Public Use
  Company Number: US-ABBVIE-4233578

PATIENT

DRUGS (1)
  1. RINVOQ [Suspect]
     Active Substance: UPADACITINIB
     Indication: Colitis ulcerative
     Dosage: FIRST ADMIN DATE- JUN 2022
     Route: 048
     Dates: start: 202206

REACTIONS (7)
  - Colitis ulcerative [Unknown]
  - Abdominal discomfort [Unknown]
  - Autoimmune neutropenia [Recovering/Resolving]
  - Abnormal dreams [Unknown]
  - Acne [Not Recovered/Not Resolved]
  - Blood cholesterol increased [Unknown]
  - Laboratory test abnormal [Recovering/Resolving]

NARRATIVE: CASE EVENT DATE: 20220101
